FAERS Safety Report 4554001-3 (Version None)
Quarter: 2005Q1

REPORT INFORMATION
  Report Type: 
  Country: None (occurrence: None)
  Receive Date: 20050118
  Receipt Date: 20041231
  Transmission Date: 20050727
  Serious: Yes (Other)
  Sender: FDA-Public Use
  Company Number: FR-JNJFOC-20041204979

PATIENT
  Age: 64 Year
  Sex: Female
  Weight: 62 kg

DRUGS (6)
  1. CAELYX [Suspect]
     Indication: OVARIAN CANCER METASTATIC
     Dosage: 40-45 MG X 17 CYCLES
     Route: 042
  2. CARBOPLATIN [Suspect]
     Indication: OVARIAN CANCER METASTATIC
     Route: 042
  3. ZOPHRAN [Concomitant]
  4. SOLU-MEDROL [Concomitant]
  5. NEUPOGEN [Concomitant]
  6. LOVENOX [Concomitant]
     Indication: PORTAL VEIN THROMBOSIS

REACTIONS (1)
  - AORTIC DISSECTION [None]
